FAERS Safety Report 6709165-X (Version None)
Quarter: 2010Q2

REPORT INFORMATION
  Report Type: 
  Country: None (occurrence: None)
  Receive Date: 20100504
  Receipt Date: 20100422
  Transmission Date: 20101027
  Serious: Yes (Other)
  Sender: FDA-Public Use
  Company Number: GB-GENZYME-THYM-1001475

PATIENT
  Sex: Female

DRUGS (4)
  1. THYMOGLOBULIN [Suspect]
     Indication: CROHN'S DISEASE
     Dosage: UNK
     Route: 042
  2. METHYLPREDNISOLONE [Concomitant]
     Indication: DRUG USE FOR UNKNOWN INDICATION
     Dosage: UNK
  3. ANTIEMETICS AND ANTINAUSEANTS [Concomitant]
     Indication: DRUG USE FOR UNKNOWN INDICATION
     Dosage: UNK
  4. PAIN KILLERS [Concomitant]
     Indication: DRUG USE FOR UNKNOWN INDICATION

REACTIONS (1)
  - ACUTE RESPIRATORY DISTRESS SYNDROME [None]
